FAERS Safety Report 9975805 (Version 1)
Quarter: 2014Q1

REPORT INFORMATION
  Report Type: Spontaneous
  Country: AU (occurrence: AU)
  Receive Date: 20140306
  Receipt Date: 20140306
  Transmission Date: 20141002
  Serious: Yes (Other)
  Sender: FDA-Public Use
  Company Number: CHPA2014AU003466

PATIENT
  Sex: Male

DRUGS (1)
  1. QUITX GUM [Suspect]
     Indication: SMOKING CESSATION THERAPY
     Dosage: 4 MG, QD
     Route: 002
     Dates: start: 20140302, end: 20140302

REACTIONS (1)
  - Swollen tongue [Unknown]
